FAERS Safety Report 14111336 (Version 1)
Quarter: 2017Q4

REPORT INFORMATION
  Report Type: Spontaneous
  Country: US (occurrence: US)
  Receive Date: 20171020
  Receipt Date: 20171020
  Transmission Date: 20180321
  Serious: Yes (Hospitalization)
  Sender: FDA-Public Use
  Company Number: US-SAOL THERAPEUTICS-2017SAO00429

PATIENT
  Age: 27 Year
  Sex: Female
  Weight: 33.6 kg

DRUGS (2)
  1. BACLOFEN. [Suspect]
     Active Substance: BACLOFEN
     Indication: MUSCLE SPASTICITY
     Dosage: 694.5 ?G, \DAY
     Route: 037
  2. MANY MEDICATIONS (UNSPECIFIED) [Concomitant]

REACTIONS (3)
  - Pneumonia aspiration [Unknown]
  - Lethargy [Recovered/Resolved]
  - Sepsis [Recovered/Resolved]

NARRATIVE: CASE EVENT DATE: 201702
